FAERS Safety Report 13949232 (Version 1)
Quarter: 2017Q3

REPORT INFORMATION
  Report Type: Spontaneous
  Country: US (occurrence: US)
  Receive Date: 20170908
  Receipt Date: 20170908
  Transmission Date: 20171128
  Serious: No
  Sender: FDA-Public Use
  Company Number: US-JAZZ-2017-US-009579

PATIENT
  Age: 28 Year
  Sex: Female

DRUGS (11)
  1. NEXIUM [Concomitant]
     Active Substance: ESOMEPRAZOLE MAGNESIUM
  2. EPIPEN [Concomitant]
     Active Substance: EPINEPHRINE
  3. XYREM [Suspect]
     Active Substance: SODIUM OXYBATE
     Indication: NARCOLEPSY
     Dosage: 2.25G, BID
     Route: 048
     Dates: start: 20170719
  4. FOLIC ACID. [Concomitant]
     Active Substance: FOLIC ACID
     Indication: RHEUMATOID ARTHRITIS
  5. MOBIC [Concomitant]
     Active Substance: MELOXICAM
  6. XYREM [Suspect]
     Active Substance: SODIUM OXYBATE
     Indication: CATAPLEXY
  7. RITALIN [Concomitant]
     Active Substance: METHYLPHENIDATE HYDROCHLORIDE
  8. CYMBALTA [Concomitant]
     Active Substance: DULOXETINE HYDROCHLORIDE
  9. ZYRTEC [Concomitant]
     Active Substance: CETIRIZINE HYDROCHLORIDE
  10. CYCLAFEM [Concomitant]
  11. METHOTREXATE. [Concomitant]
     Active Substance: METHOTREXATE

REACTIONS (9)
  - Muscle twitching [Unknown]
  - Alopecia [Not Recovered/Not Resolved]
  - Paraesthesia [Unknown]
  - Limb discomfort [Unknown]
  - Hypoaesthesia [Unknown]
  - Arthralgia [Unknown]
  - Micturition urgency [Unknown]
  - Migraine [Recovered/Resolved]
  - Visual impairment [Unknown]

NARRATIVE: CASE EVENT DATE: 201707
